FAERS Safety Report 19565208 (Version 2)
Quarter: 2021Q3

REPORT INFORMATION
  Report Type: Spontaneous
  Country: US (occurrence: US)
  Receive Date: 20210714
  Receipt Date: 20210723
  Transmission Date: 20211014
  Serious: Yes (Hospitalization)
  Sender: FDA-Public Use
  Company Number: US-TEVA-2021-US-1931330

PATIENT
  Age: 66 Year
  Sex: Male

DRUGS (1)
  1. COTRIMOXAZOLE [Suspect]
     Active Substance: SULFAMETHOXAZOLE\TRIMETHOPRIM
     Indication: PNEUMONIA
     Dosage: ONE DOSE WAS ADMINISTERED
     Route: 065

REACTIONS (2)
  - Hypoxia [Recovering/Resolving]
  - Methaemoglobinaemia [Recovering/Resolving]
